FAERS Safety Report 13956329 (Version 1)
Quarter: 2017Q3

REPORT INFORMATION
  Report Type: Spontaneous
  Country: US (occurrence: US)
  Receive Date: 20170911
  Receipt Date: 20170911
  Transmission Date: 20171128
  Serious: No
  Sender: FDA-Public Use
  Company Number: US-BRISTOL-MYERS SQUIBB COMPANY-BMS-2017-081292

PATIENT
  Sex: Male
  Weight: 91.62 kg

DRUGS (1)
  1. YERVOY [Suspect]
     Active Substance: IPILIMUMAB
     Indication: METASTATIC MALIGNANT MELANOMA
     Dosage: 3 MG/KG, Q3WK
     Route: 042
     Dates: start: 201707

REACTIONS (6)
  - Hepatic enzyme increased [Unknown]
  - Influenza [Unknown]
  - Decreased appetite [Unknown]
  - Lethargy [Unknown]
  - Feeling abnormal [Unknown]
  - Fatigue [Unknown]
